FAERS Safety Report 8247225-5 (Version None)
Quarter: 2012Q1

REPORT INFORMATION
  Report Type: 
  Country: None (occurrence: None)
  Receive Date: 20120330
  Receipt Date: 20120315
  Transmission Date: 20120608
  Serious: Yes (Other)
  Sender: FDA-Public Use
  Company Number: FR-ROCHE-1054543

PATIENT
  Sex: Female

DRUGS (12)
  1. IRBESARTAN [Concomitant]
     Dates: start: 20111101
  2. SYMBICORT [Concomitant]
  3. ATARAX [Concomitant]
  4. CIPROFIBRATE [Concomitant]
  5. IRBESARTAN [Concomitant]
     Dates: start: 20111201
  6. XYZAL [Concomitant]
  7. LUCENTIS [Suspect]
     Indication: AGE-RELATED MACULAR DEGENERATION
     Route: 050
     Dates: start: 20110601
  8. AMIODARONE HCL [Concomitant]
     Indication: HYPERTENSION
  9. BISOPROLOL FUMARATE [Concomitant]
     Indication: HYPERTENSION
  10. IRBESARTAN [Concomitant]
     Dates: end: 20111101
  11. EXFORGE [Suspect]
     Indication: PRODUCT USED FOR UNKNOWN INDICATION
     Dosage: 5MG / 160MG
  12. ESIDRIX [Suspect]
     Indication: PRODUCT USED FOR UNKNOWN INDICATION

REACTIONS (2)
  - BLOOD PRESSURE INCREASED [None]
  - BLOOD PRESSURE SYSTOLIC INCREASED [None]
